FAERS Safety Report 18575087 (Version 2)
Quarter: 2022Q1

REPORT INFORMATION
  Report Type: Spontaneous
  Country: US (occurrence: US)
  Receive Date: 20201203
  Receipt Date: 20220203
  Transmission Date: 20220423
  Serious: Yes (Other)
  Sender: FDA-Public Use
  Company Number: US-PFIZER INC-2020473936

PATIENT
  Age: 71 Year
  Sex: Female

DRUGS (1)
  1. EUCRISA [Suspect]
     Active Substance: CRISABOROLE
     Dosage: UNK

REACTIONS (5)
  - Chronic kidney disease [Unknown]
  - Condition aggravated [Unknown]
  - Extrasystoles [Unknown]
  - Stress [Unknown]
  - Gastrooesophageal reflux disease [Unknown]
